FAERS Safety Report 25064687 (Version 1)
Quarter: 2025Q1

REPORT INFORMATION
  Report Type: Spontaneous
  Country: US (occurrence: US)
  Receive Date: 20250311
  Receipt Date: 20250311
  Transmission Date: 20250409
  Serious: No
  Sender: AMGEN
  Company Number: US-AMGEN-USASP2025043517

PATIENT
  Sex: Male

DRUGS (1)
  1. PROCRIT [Suspect]
     Active Substance: ERYTHROPOIETIN
     Indication: Nephrogenic anaemia
     Dosage: 3000 INTERNATIONAL UNIT, Q2WK
     Route: 065
     Dates: start: 2023

REACTIONS (3)
  - Injection site pain [Unknown]
  - Joint swelling [Not Recovered/Not Resolved]
  - Incorrect route of product administration [Unknown]
